FAERS Safety Report 8884576 (Version 3)
Quarter: 2012Q4

REPORT INFORMATION
  Report Type: 
  Country: JP (occurrence: JP)
  Receive Date: 20121104
  Receipt Date: 20121216
  Transmission Date: 20130627
  Serious: Yes (Hospitalization)
  Sender: FDA-Public Use
  Company Number: JP-AMGEN-JPNSP2012069820

PATIENT
  Age: 71 Year
  Sex: Male
  Weight: 67 kg

DRUGS (16)
  1. RANMARK [Suspect]
     Indication: BONE LESION
     Dosage: 120 mg, UNK
     Route: 058
     Dates: start: 20120816, end: 20120913
  2. RANMARK [Suspect]
     Indication: PROSTATE CANCER
  3. ZOMETA [Suspect]
     Indication: METASTASES TO BONE
     Route: 042
     Dates: start: 20110819, end: 20120719
  4. ZOMETA [Suspect]
     Indication: PROSTATE CANCER METASTATIC
  5. LANTUS [Concomitant]
     Indication: DIABETES MELLITUS
     Dosage: Unknown
     Route: 058
  6. REBAMIPIDE [Concomitant]
     Indication: PROSTATE CANCER
     Route: 048
     Dates: start: 20110829
  7. ZOLADEX DEPOT [Concomitant]
     Indication: PROSTATE CANCER
     Route: 058
     Dates: start: 20120105
  8. LOXOPROFEN SODIUM [Concomitant]
     Indication: PROSTATE CANCER
     Route: 048
     Dates: start: 20110829
  9. DECADRON ELIXIR [Concomitant]
     Indication: PROSTATE CANCER
     Route: 048
     Dates: start: 20111208, end: 20120924
  10. BUP-4 [Concomitant]
     Route: 048
  11. ACARBOSE [Concomitant]
     Indication: DIABETES MELLITUS
     Route: 048
  12. AMARYL [Concomitant]
     Indication: DIABETES MELLITUS
     Route: 048
     Dates: end: 20120925
  13. EQUA [Concomitant]
     Indication: DIABETES MELLITUS
     Route: 048
  14. AMLODIPINE [Concomitant]
     Indication: HYPERTENSION
     Route: 048
  15. GASPORT-D [Concomitant]
     Route: 048
  16. MAGLAX [Concomitant]
     Route: 048

REACTIONS (1)
  - Osteonecrosis of jaw [Recovering/Resolving]
